FAERS Safety Report 6181664-1 (Version None)
Quarter: 2009Q2

REPORT INFORMATION
  Report Type: 
  Country: None (occurrence: None)
  Receive Date: 20090506
  Receipt Date: 20090427
  Transmission Date: 20091009
  Serious: Yes (Congenital Anomaly)
  Sender: FDA-Public Use
  Company Number: B0572723A

PATIENT

DRUGS (1)
  1. PAXIL [Suspect]
     Indication: MIGRAINE
     Dosage: 30MG PER DAY

REACTIONS (2)
  - ARNOLD-CHIARI MALFORMATION [None]
  - SPINA BIFIDA [None]
